FAERS Safety Report 9056326 (Version 7)
Quarter: 2013Q2

REPORT INFORMATION
  Report Type: Report from Study
  Country: FR (occurrence: FR)
  Receive Date: 20130204
  Receipt Date: 20130613
  Transmission Date: 20140414
  Serious: Yes (Hospitalization, Other)
  Sender: FDA-Public Use
  Company Number: FR-009507513-1210FRA002356

PATIENT
  Age: 59 Year
  Sex: Male
  Weight: 88 kg

DRUGS (15)
  1. RALTEGRAVIR POTASSIUM [Suspect]
     Indication: HIV INFECTION
     Dosage: 400 MG, BID
     Route: 048
     Dates: start: 20070328, end: 20130207
  2. CELSENTRI [Suspect]
     Indication: HIV INFECTION
     Dosage: 150 MG, QD
     Route: 048
     Dates: start: 20100318, end: 20121016
  3. CELSENTRI [Suspect]
     Dosage: 300 MG, BID
     Route: 048
     Dates: start: 20121016, end: 20130318
  4. PREZISTA [Concomitant]
     Indication: HIV INFECTION
     Dosage: 600 MG, BID
     Dates: start: 20080430
  5. ZELITREX [Concomitant]
     Indication: HERPES VIRUS INFECTION
     Dosage: 500 MG, QD
     Route: 048
     Dates: start: 20060623
  6. ZIAGEN [Concomitant]
     Indication: HIV INFECTION
     Dosage: 300 MG, BID
     Route: 048
     Dates: start: 20020912
  7. BACTRIM [Concomitant]
     Indication: PNEUMOCYSTIS JIROVECII PNEUMONIA
     Dosage: 400 MG, QD
     Route: 048
     Dates: start: 20060623
  8. NORVIR [Concomitant]
     Indication: HIV INFECTION
     Dosage: 100 MG, BID
     Route: 048
     Dates: start: 20080430
  9. EPIVIR [Concomitant]
     Indication: HIV INFECTION
     Dosage: 25 MG, QD
     Route: 048
     Dates: start: 20030430
  10. CORTANCYL [Concomitant]
     Indication: TRANSPLANT
     Dosage: 1 DF, QD
     Dates: start: 20120927
  11. CELLCEPT [Concomitant]
     Indication: TRANSPLANT
     Dosage: 1 DF, BID
     Dates: start: 20120927
  12. PROGRAF [Concomitant]
     Indication: TRANSPLANT
     Dosage: 6 MG, BID
     Dates: start: 20120927
  13. ASPEGIC [Concomitant]
     Indication: CARDIOVASCULAR DISORDER
     Dosage: 100 MG, QD
     Dates: start: 20120928
  14. ROVALCYTE [Concomitant]
     Indication: PROPHYLAXIS
     Dosage: 900 MG, QD
     Dates: start: 20120927
  15. KIVEXA [Concomitant]
     Indication: HIV INFECTION
     Dosage: 600 MG, QD
     Dates: start: 20121029

REACTIONS (3)
  - Transient ischaemic attack [Recovering/Resolving]
  - Blood HIV RNA increased [Unknown]
  - Blood HIV RNA increased [Recovering/Resolving]
